FAERS Safety Report 18222075 (Version 2)
Quarter: 2020Q3

REPORT INFORMATION
  Report Type: Spontaneous
  Country: US (occurrence: US)
  Receive Date: 20200902
  Receipt Date: 20200911
  Transmission Date: 20201103
  Serious: Yes (Death, Hospitalization, Other)
  Sender: FDA-Public Use
  Company Number: US-ROCHE-2668152

PATIENT
  Age: 106 Year
  Sex: Female
  Weight: 64.3 kg

DRUGS (6)
  1. ACTIVASE [Suspect]
     Active Substance: ALTEPLASE
     Route: 042
  2. LASIX [Concomitant]
     Active Substance: FUROSEMIDE
     Route: 048
  3. ACTIVASE [Suspect]
     Active Substance: ALTEPLASE
     Route: 041
     Dates: start: 20200719, end: 20200719
  4. SYNTHROID [Concomitant]
     Active Substance: LEVOTHYROXINE SODIUM
     Indication: HYPOTHYROIDISM
     Route: 048
  5. ACTIVASE [Suspect]
     Active Substance: ALTEPLASE
     Indication: CEREBROVASCULAR ACCIDENT
     Dosage: ONE DOSE ONLY; ONGOING: NO
     Route: 040
     Dates: start: 20200719, end: 20200719
  6. ASPIRIN. [Concomitant]
     Active Substance: ASPIRIN
     Dosage: ONGOING: NO
     Route: 048

REACTIONS (6)
  - Haemorrhagic transformation stroke [Unknown]
  - Haemorrhage [Unknown]
  - Hemiparesis [Unknown]
  - Product quality issue [Unknown]
  - Stroke in evolution [Unknown]
  - Death [Fatal]

NARRATIVE: CASE EVENT DATE: 20200719
